FAERS Safety Report 5299686-1 (Version None)
Quarter: 2007Q2

REPORT INFORMATION
  Report Type: 
  Country: None (occurrence: None)
  Receive Date: 20070410
  Receipt Date: 20070329
  Transmission Date: 20071010
  Serious: Yes (Death, Hospitalization)
  Sender: FDA-Public Use
  Company Number: GXKR2007NZ03048

PATIENT
  Age: 19 Year
  Sex: Male

DRUGS (4)
  1. AMOXICILLIN [Suspect]
  2. COLCHICINE(COLCHICINE) [Suspect]
  3. NSAID'S (NO INGREDIENTS/SUBSTANCES) [Suspect]
  4. AUGMENTIN '125' [Suspect]

REACTIONS (9)
  - ABDOMINAL PAIN [None]
  - ACIDOSIS [None]
  - CARDIAC ARREST [None]
  - DEPRESSED LEVEL OF CONSCIOUSNESS [None]
  - DIARRHOEA [None]
  - HYPOTENSION [None]
  - INTENTIONAL OVERDOSE [None]
  - RENAL FAILURE ACUTE [None]
  - VOMITING [None]
